FAERS Safety Report 4699043-2 (Version None)
Quarter: 2005Q2

REPORT INFORMATION
  Report Type: 
  Country: None (occurrence: None)
  Receive Date: 20050622
  Receipt Date: 20050622
  Transmission Date: 20051028
  Serious: Yes (Other)
  Sender: FDA-Public Use
  Company Number: None

PATIENT
  Age: 60 Year
  Sex: Female

DRUGS (7)
  1. FOSAMAX [Suspect]
     Indication: OSTEOPOROSIS
     Dosage: ORAL-70 MG SINGLE DOSE 35 MG SINGLE DOSE
     Route: 048
     Dates: start: 20050522
  2. FOSAMAX [Suspect]
     Indication: OSTEOPOROSIS
     Dosage: ORAL-70 MG SINGLE DOSE 35 MG SINGLE DOSE
     Route: 048
     Dates: start: 20050529
  3. PREMARIN [Concomitant]
  4. . [Concomitant]
  5. PULMICORT [Concomitant]
  6. NASACORT [Concomitant]
  7. CACO3 [Concomitant]

REACTIONS (5)
  - BACK PAIN [None]
  - CHEST PAIN [None]
  - CHEST WALL PAIN [None]
  - RADICULAR PAIN [None]
  - SHOULDER PAIN [None]
